FAERS Safety Report 24295401 (Version 1)
Quarter: 2024Q3

REPORT INFORMATION
  Report Type: Other
  Country: ZA (occurrence: ZA)
  Receive Date: 20240908
  Receipt Date: 20240908
  Transmission Date: 20241017
  Serious: Yes (Congenital Anomaly, Other)
  Sender: MACLEODS
  Company Number: ZA-MACLEODS PHARMA-MAC2024049143

PATIENT

DRUGS (6)
  1. TENOFOVIR DISOPROXIL [Suspect]
     Active Substance: TENOFOVIR DISOPROXIL
     Indication: Product used for unknown indication
     Dosage: 2 COURSE, PRIOR TO CONCEPTION AND EXPOSURE DURING FIRST TRIMESTER
     Route: 064
     Dates: start: 20220728
  2. TENOFOVIR DISOPROXIL [Suspect]
     Active Substance: TENOFOVIR DISOPROXIL
     Dosage: 2 COURSE, PRIOR TO CONCEPTION AND EXPOSURE DURING FIRST TRIMESTER
     Route: 064
     Dates: start: 20220727, end: 20230726
  3. TENOFOVIR ALAFENAMIDE [Suspect]
     Active Substance: TENOFOVIR ALAFENAMIDE
     Indication: Product used for unknown indication
     Dosage: 2 COURSE, PRIOR TO CONCEPTION AND EXPOSURE DURING FIRST TRIMESTER
     Route: 064
     Dates: start: 20220728
  4. TENOFOVIR ALAFENAMIDE [Suspect]
     Active Substance: TENOFOVIR ALAFENAMIDE
     Dosage: 2 COURSE, PRIOR TO CONCEPTION AND EXPOSURE DURING FIRST TRIMESTER
     Route: 064
     Dates: start: 20220727, end: 20230726
  5. LENACAPAVIR [Suspect]
     Active Substance: LENACAPAVIR
     Indication: Product used for unknown indication
     Dosage: SUNLENCA, 2 COURSE, PRIOR TO CONCEPTION AND EXPOSURE DURING FIRST TRIMESTER
     Route: 064
     Dates: start: 20220728
  6. LENACAPAVIR [Suspect]
     Active Substance: LENACAPAVIR
     Dosage: SUNLENCA, 2 COURSE, PRIOR TO CONCEPTION AND EXPOSURE DURING FIRST TRIMESTER
     Route: 064
     Dates: start: 20220727, end: 20230726

REACTIONS (2)
  - Hydrocele [Unknown]
  - Foetal exposure during pregnancy [Unknown]
